FAERS Safety Report 8363957-2 (Version None)
Quarter: 2012Q2

REPORT INFORMATION
  Report Type: 
  Country: None (occurrence: None)
  Receive Date: 20120516
  Receipt Date: 20120508
  Transmission Date: 20120825
  Serious: Yes (Other)
  Sender: FDA-Public Use
  Company Number: US-PFIZER INC-2012062137

PATIENT
  Sex: Female
  Weight: 63 kg

DRUGS (7)
  1. ZOFRAN [Concomitant]
     Indication: NAUSEA
     Dosage: 4 MG, 1 TABLET EVERY 4-6 HOURS
     Route: 048
  2. CITALOPRAM [Concomitant]
     Indication: DEPRESSION
     Dosage: 40 MG, 1X/DAY
     Route: 048
  3. MACROBID [Concomitant]
     Indication: URINARY TRACT INFECTION
     Dosage: 100 MG, 2X/DAY
  4. TYLENOL (CAPLET) [Concomitant]
     Indication: PAIN
     Dosage: UNK
     Route: 048
  5. CITALOPRAM [Concomitant]
     Indication: POST-TRAUMATIC STRESS DISORDER
  6. LO/OVRAL-28 [Suspect]
     Indication: ORAL CONTRACEPTION
     Dosage: 0.3/3 MG/MCG ONE TABLET EVERY DAY
     Route: 048
     Dates: start: 20110727, end: 20120201
  7. MULTI-VITAMINS [Concomitant]
     Dosage: 0.8 MG, 1X/DAY
     Route: 048

REACTIONS (4)
  - ABORTION MISSED [None]
  - UNINTENDED PREGNANCY [None]
  - PRODUCT QUALITY ISSUE [None]
  - DRUG INEFFECTIVE [None]
